FAERS Safety Report 24588123 (Version 1)
Quarter: 2024Q4

REPORT INFORMATION
  Report Type: Spontaneous
  Country: FI (occurrence: FI)
  Receive Date: 20241107
  Receipt Date: 20241107
  Transmission Date: 20250115
  Serious: Yes (Death, Life-Threatening, Hospitalization)
  Sender: ROCHE
  Company Number: FI-ROCHE-10000124827

PATIENT
  Age: 75 Year
  Sex: Male

DRUGS (8)
  1. TECENTRIQ [Suspect]
     Active Substance: ATEZOLIZUMAB
     Indication: Squamous cell carcinoma of lung
     Route: 042
     Dates: start: 20230423
  2. CARBOPLATIN [Concomitant]
     Active Substance: CARBOPLATIN
  3. VINORELBINE [Concomitant]
     Active Substance: VINORELBINE TARTRATE
  4. CEFUROXIME [Concomitant]
     Active Substance: CEFUROXIME
  5. METHYLPREDNISOLONE [Concomitant]
     Active Substance: METHYLPREDNISOLONE
     Dates: start: 20230507
  6. ATIVAN [Concomitant]
     Active Substance: LORAZEPAM
  7. KEPPRA [Concomitant]
     Active Substance: LEVETIRACETAM
  8. MORPHINE [Concomitant]
     Active Substance: MORPHINE

REACTIONS (6)
  - Pyrexia [Unknown]
  - Infection [Unknown]
  - Liver function test increased [Unknown]
  - Confusional state [Unknown]
  - Encephalopathy [Fatal]
  - Depressed level of consciousness [Unknown]

NARRATIVE: CASE EVENT DATE: 20230503
